FAERS Safety Report 7256822-5 (Version None)
Quarter: 2011Q1

REPORT INFORMATION
  Report Type: 
  Country: None (occurrence: None)
  Receive Date: 20110129
  Receipt Date: 20100810
  Transmission Date: 20110831
  Serious: No
  Sender: FDA-Public Use
  Company Number: US-ABBOTT-10P-163-0663276-00

PATIENT
  Sex: Male
  Weight: 64.014 kg

DRUGS (3)
  1. PREDNISONE [Concomitant]
     Indication: COLITIS ULCERATIVE
  2. SULFASALAZINE [Concomitant]
     Indication: COLITIS ULCERATIVE
  3. HUMIRA [Suspect]
     Indication: COLITIS ULCERATIVE
     Dates: start: 20100630

REACTIONS (2)
  - HEADACHE [None]
  - PYREXIA [None]
